FAERS Safety Report 9534898 (Version 2)
Quarter: 2013Q3

REPORT INFORMATION
  Report Type: Report from Study
  Country: KR (occurrence: KR)
  Receive Date: 20130918
  Receipt Date: 20130918
  Transmission Date: 20140515
  Serious: Yes (Hospitalization)
  Sender: FDA-Public Use
  Company Number: KR-PFIZER INC-2013218589

PATIENT
  Age: 23 Year
  Sex: Male

DRUGS (1)
  1. CADUET [Suspect]
     Indication: BLOOD PRESSURE
     Dosage: 10 MG/20 MG, 1X/DAY
     Route: 048
     Dates: start: 20130713, end: 20130713

REACTIONS (1)
  - Henoch-Schonlein purpura [Recovered/Resolved]
